FAERS Safety Report 24758631 (Version 1)
Quarter: 2024Q4

REPORT INFORMATION
  Report Type: Spontaneous
  Country: US (occurrence: US)
  Receive Date: 20241220
  Receipt Date: 20241220
  Transmission Date: 20250114
  Serious: Yes (Hospitalization, Other)
  Sender: SANOFI AVENTIS
  Company Number: US-SA-200513301EU

PATIENT
  Age: 71 Year
  Sex: Female

DRUGS (6)
  1. LOVENOX [Suspect]
     Active Substance: ENOXAPARIN SODIUM
     Indication: Thrombosis prophylaxis
     Dosage: 40 MG, QD
     Route: 058
  2. LOVENOX [Suspect]
     Active Substance: ENOXAPARIN SODIUM
     Indication: Acute coronary syndrome
     Dosage: 1 MG/KG, Q12H
     Route: 058
  3. PLAVIX [Suspect]
     Active Substance: CLOPIDOGREL BISULFATE
     Indication: Acute coronary syndrome
     Dosage: 75 MG, QD
  4. ASPIRIN [Suspect]
     Active Substance: ASPIRIN
     Indication: Acute coronary syndrome
     Dosage: 325 MG, QD
  5. LEVOFLOXACIN [Concomitant]
     Active Substance: LEVOFLOXACIN
     Indication: Pneumonia
     Dosage: UNK
  6. TRIDIL [GLYCERYL TRINITRATE] [Concomitant]
     Indication: Acute coronary syndrome
     Dosage: UNK
     Route: 041

REACTIONS (16)
  - Retroperitoneal haematoma [Recovering/Resolving]
  - Retroperitoneal haemorrhage [Recovering/Resolving]
  - Flank pain [Recovering/Resolving]
  - Back pain [Recovering/Resolving]
  - Abdominal discomfort [Recovering/Resolving]
  - Ecchymosis [Recovering/Resolving]
  - Abdominal mass [Recovering/Resolving]
  - Abdominal distension [Recovering/Resolving]
  - Shock haemorrhagic [Recovering/Resolving]
  - Haemodynamic instability [Recovering/Resolving]
  - Somnolence [Recovering/Resolving]
  - Peripheral coldness [Recovering/Resolving]
  - Abdominal compartment syndrome [Recovering/Resolving]
  - Anuria [Recovering/Resolving]
  - Gastrointestinal sounds abnormal [Recovering/Resolving]
  - Lactic acidosis [Unknown]
